FAERS Safety Report 4869557-0 (Version None)
Quarter: 2005Q4

REPORT INFORMATION
  Report Type: 
  Country: None (occurrence: None)
  Receive Date: 20051223
  Receipt Date: 20051221
  Transmission Date: 20060501
  Serious: Yes (Other)
  Sender: FDA-Public Use
  Company Number: HQWYE554605MAY05

PATIENT
  Sex: Female

DRUGS (2)
  1. PANTOZOL (PANTOPRAZOLE, INJECTION) [Suspect]
     Indication: GASTRIC ULCER
     Dosage: DF INFUSION
     Dates: start: 20050303, end: 20050306
  2. PANTOPRAZOLE SODIUM [Concomitant]

REACTIONS (2)
  - BLINDNESS [None]
  - OPTIC ATROPHY [None]
